FAERS Safety Report 14369223 (Version 1)
Quarter: 2018Q1

REPORT INFORMATION
  Report Type: Spontaneous
  Country: US (occurrence: US)
  Receive Date: 20180109
  Receipt Date: 20180109
  Transmission Date: 20180509
  Serious: Yes (Hospitalization)
  Sender: FDA-Public Use
  Company Number: US-ASTRAZENECA-2017SE57869

PATIENT
  Sex: Female

DRUGS (1)
  1. BYDUREON [Suspect]
     Active Substance: EXENATIDE
     Route: 065

REACTIONS (10)
  - Infection [Recovered/Resolved]
  - Renal disorder [Unknown]
  - Circumstance or information capable of leading to medication error [Unknown]
  - Sepsis [Recovered/Resolved]
  - Cardiac disorder [Unknown]
  - Urinary tract infection [Recovered/Resolved]
  - Apparent death [Unknown]
  - Blood glucose increased [Recovered/Resolved]
  - Pain [Unknown]
  - Product packaging quantity issue [Unknown]
